FAERS Safety Report 10042580 (Version 2)
Quarter: 2014Q2

REPORT INFORMATION
  Report Type: Spontaneous
  Country: DE (occurrence: DE)
  Receive Date: 20140327
  Receipt Date: 20140501
  Transmission Date: 20141212
  Serious: Yes (Other)
  Sender: FDA-Public Use
  Company Number: DE-WATSON-2014-05576

PATIENT
  Sex: Female
  Weight: 70 kg

DRUGS (20)
  1. CARBOPLATIN ACTAVIS [Suspect]
     Indication: UTERINE CANCER
     Dosage: 210 MG, DAILY
     Route: 042
     Dates: start: 20131223, end: 20131223
  2. CARBOPLATIN ACTAVIS [Suspect]
     Dosage: 210 MG, DAILY
     Route: 042
     Dates: start: 20131230, end: 20131230
  3. CARBOPLATIN ACTAVIS [Suspect]
     Dosage: 210 MG, DAILY
     Route: 042
     Dates: start: 20140106, end: 20140106
  4. CARBOPLATIN ACTAVIS [Suspect]
     Dosage: 210 MG, DAILY
     Route: 042
     Dates: start: 20140113, end: 20140113
  5. CARBOPLATIN ACTAVIS [Suspect]
     Dosage: 230 MG, DAILY
     Route: 042
     Dates: start: 20140122, end: 20140122
  6. CARBOPLATIN ACTAVIS [Suspect]
     Dosage: 230 MG, DAILY
     Route: 042
     Dates: start: 20140128, end: 20140128
  7. CARBOPLATIN ACTAVIS [Suspect]
     Dosage: 310 MG, DAILY
     Route: 042
     Dates: start: 20140204, end: 20140204
  8. CARBOPLATIN ACTAVIS [Suspect]
     Dosage: 210 MG, DAILY
     Route: 042
     Dates: start: 20140211, end: 20140211
  9. CARBOPLATIN ACTAVIS [Suspect]
     Dosage: 210 MG, DAILY
     Route: 042
     Dates: start: 20140218, end: 20140218
  10. CARBOPLATIN ACTAVIS [Suspect]
     Dosage: 210 MG, DAILY
     Route: 042
     Dates: start: 20140226, end: 20140226
  11. PACLITAXEL FRESENIUS KABI [Concomitant]
     Indication: PRODUCT USED FOR UNKNOWN INDICATION
     Dosage: 145 MG, UNK
     Route: 042
     Dates: start: 20131223, end: 20131223
  12. PACLITAXEL FRESENIUS KABI [Concomitant]
     Dosage: 145 MG, UNK
     Route: 042
     Dates: start: 20131230, end: 20131230
  13. PACLITAXEL FRESENIUS KABI [Concomitant]
     Dosage: 145 MG, UNK
     Route: 042
     Dates: start: 20130106, end: 20130106
  14. PACLITAXEL FRESENIUS KABI [Concomitant]
     Dosage: 145 MG, UNK
     Route: 042
     Dates: start: 20130113, end: 20130113
  15. PACLITAXEL FRESENIUS KABI [Concomitant]
     Dosage: 145 MG, UNK
     Route: 042
     Dates: start: 20130122, end: 20130122
  16. PACLITAXEL FRESENIUS KABI [Concomitant]
     Dosage: 145 MG, UNK
     Route: 042
     Dates: start: 20130128, end: 20130128
  17. PACLITAXEL FRESENIUS KABI [Concomitant]
     Dosage: 145 MG, UNK
     Route: 042
     Dates: start: 20130218, end: 20130218
  18. PACLITAXEL FRESENIUS KABI [Concomitant]
     Dosage: 145 MG, UNK
     Route: 042
     Dates: start: 20140204, end: 20140204
  19. PACLITAXEL FRESENIUS KABI [Concomitant]
     Dosage: 145 MG, UNK
     Route: 042
     Dates: start: 20140211, end: 20140211
  20. AVASTIN                            /01555201/ [Concomitant]
     Indication: PRODUCT USED FOR UNKNOWN INDICATION
     Dosage: 1050 MG, UNK
     Route: 042
     Dates: start: 20140204, end: 20140204

REACTIONS (2)
  - Neoplasm progression [Not Recovered/Not Resolved]
  - Drug ineffective [Not Recovered/Not Resolved]
